FAERS Safety Report 12415737 (Version 3)
Quarter: 2017Q4

REPORT INFORMATION
  Report Type: Report from Study
  Country: US (occurrence: US)
  Receive Date: 20160530
  Receipt Date: 20171031
  Transmission Date: 20180320
  Serious: No
  Sender: FDA-Public Use
  Company Number: PHHY2014US130174

PATIENT
  Age: 52 Year
  Sex: Female
  Weight: 158 kg

DRUGS (3)
  1. GILENYA [Suspect]
     Active Substance: FINGOLIMOD HYDROCHLORIDE
     Indication: MULTIPLE SCLEROSIS
     Dosage: 0.5 MG, QD
     Route: 048
     Dates: start: 20140507
  2. LEXAPRO [Concomitant]
     Active Substance: ESCITALOPRAM OXALATE
     Indication: DEPRESSION
     Dosage: 10 MG, QD
     Route: 065
     Dates: start: 2013
  3. ATIVAN [Concomitant]
     Active Substance: LORAZEPAM
     Indication: INSOMNIA
     Dosage: 2 MG, QHS
     Route: 065
     Dates: start: 2008

REACTIONS (8)
  - Back pain [Recovered/Resolved]
  - White blood cell count decreased [Unknown]
  - Aspartate aminotransferase increased [Recovering/Resolving]
  - Headache [Unknown]
  - Concomitant disease aggravated [Unknown]
  - Intervertebral disc disorder [Unknown]
  - Alanine aminotransferase increased [Recovering/Resolving]
  - Lumbar radiculopathy [Recovered/Resolved]

NARRATIVE: CASE EVENT DATE: 20140520
